FAERS Safety Report 4718844-5 (Version None)
Quarter: 2005Q3

REPORT INFORMATION
  Report Type: 
  Country: None (occurrence: None)
  Receive Date: 20050719
  Receipt Date: 20050705
  Transmission Date: 20060218
  Serious: Yes (Other)
  Sender: FDA-Public Use
  Company Number: JP_050707016

PATIENT
  Age: 63 Year
  Sex: Female
  Weight: 26 kg

DRUGS (3)
  1. ZYPREXA [Suspect]
     Indication: SCHIZOPHRENIA
     Dosage: 20 MG DAY
     Route: 048
  2. FLUPHENAZINE DECANOATE [Concomitant]
  3. QUETIAPINE [Concomitant]

REACTIONS (12)
  - ANAEMIA [None]
  - CACHEXIA [None]
  - COMMUNICATION DISORDER [None]
  - DELUSION [None]
  - DIET REFUSAL [None]
  - DRUG INEFFECTIVE [None]
  - FALL [None]
  - FEMORAL NECK FRACTURE [None]
  - GENERAL PHYSICAL CONDITION ABNORMAL [None]
  - HYPOPROTEINAEMIA [None]
  - PERSONALITY CHANGE [None]
  - WEIGHT DECREASED [None]
